FAERS Safety Report 15488648 (Version 1)
Quarter: 2018Q4

REPORT INFORMATION
  Report Type: Spontaneous
  Country: US (occurrence: US)
  Receive Date: 20181003
  Receipt Date: 20181003
  Transmission Date: 20190205
  Serious: Yes (Hospitalization)
  Sender: FDA-Public Use
  Company Number: None

PATIENT
  Age: 78 Year

DRUGS (12)
  1. CALCIUM GLUCEPTATE [Concomitant]
     Active Substance: CALCIUM GLUCEPTATE
  2. DILTIAZEM. [Concomitant]
     Active Substance: DILTIAZEM
  3. MYRBETRIQ [Concomitant]
     Active Substance: MIRABEGRON
  4. PREVACID [Concomitant]
     Active Substance: LANSOPRAZOLE
  5. VITAMIN D [Concomitant]
     Active Substance: CHOLECALCIFEROL
  6. NOVOLOG [Concomitant]
     Active Substance: INSULIN ASPART
  7. FENOFIBRATE. [Concomitant]
     Active Substance: FENOFIBRATE
  8. PRAVASTATIN. [Concomitant]
     Active Substance: PRAVASTATIN
  9. TOUJEO SOLO [Concomitant]
  10. BOSULIF [Suspect]
     Active Substance: BOSUTINIB MONOHYDRATE
     Indication: CHRONIC MYELOID LEUKAEMIA
     Route: 048
  11. ELIQUIS [Concomitant]
     Active Substance: APIXABAN
  12. TRADJENTA [Concomitant]
     Active Substance: LINAGLIPTIN

REACTIONS (2)
  - Product dose omission [None]
  - Cardiac failure congestive [None]

NARRATIVE: CASE EVENT DATE: 20180906
